FAERS Safety Report 6674629-4 (Version None)
Quarter: 2010Q2

REPORT INFORMATION
  Report Type: 
  Country: None (occurrence: None)
  Receive Date: 20100409
  Receipt Date: 20100402
  Transmission Date: 20101027
  Serious: Yes (Hospitalization)
  Sender: FDA-Public Use
  Company Number: US-ROCHE-695818

PATIENT

DRUGS (4)
  1. BEVACIZUMAB [Suspect]
     Indication: NON-SMALL CELL LUNG CANCER
     Dosage: ON DAY 1 OVER 30 - 90 MINS
     Route: 042
     Dates: start: 20090205
  2. BEVACIZUMAB [Suspect]
     Dosage: OVER 30-90 MINS
     Route: 042
  3. VINORELBINE [Suspect]
     Indication: NON-SMALL CELL LUNG CANCER
     Dosage: FREQUENCY: PER DAY OVER 10 MINS ON DAYS 1 AND 8.
     Route: 042
     Dates: start: 20090205
  4. CISPLATIN [Suspect]
     Indication: NON-SMALL CELL LUNG CANCER
     Dosage: OVER 60 MINS ON DAY 1.
     Route: 042
     Dates: start: 20090205

REACTIONS (4)
  - HAEMATOMA [None]
  - HEADACHE [None]
  - LEFT VENTRICULAR DYSFUNCTION [None]
  - SYNCOPE [None]
